FAERS Safety Report 21840105 (Version 1)
Quarter: 2023Q1

REPORT INFORMATION
  Report Type: Spontaneous
  Country: US (occurrence: US)
  Receive Date: 20230110
  Receipt Date: 20230110
  Transmission Date: 20230417
  Serious: No
  Sender: FDA-Public Use
  Company Number: US-BRISTOL-MYERS SQUIBB COMPANY-2023-003400

PATIENT
  Age: 77 Year
  Sex: Female

DRUGS (1)
  1. REVLIMID [Suspect]
     Active Substance: LENALIDOMIDE
     Indication: Plasma cell myeloma
     Dosage: FREQUENCY: EVERY OTHER DAY
     Route: 048
     Dates: start: 20221213

REACTIONS (4)
  - Pruritus [Recovering/Resolving]
  - Nausea [Unknown]
  - Constipation [Unknown]
  - Peripheral swelling [Not Recovered/Not Resolved]
